FAERS Safety Report 15188058 (Version 1)
Quarter: 2018Q3

REPORT INFORMATION
  Report Type: Spontaneous
  Country: US (occurrence: US)
  Receive Date: 20180724
  Receipt Date: 20180724
  Transmission Date: 20181010
  Serious: Yes (Hospitalization, Other)
  Sender: FDA-Public Use
  Company Number: US-HIKMA PHARMACEUTICALS USA INC.-US-H14001-18-05724

PATIENT
  Age: 57 Year
  Sex: Male
  Weight: 93.7 kg

DRUGS (12)
  1. CYANOCOBALAMIN. [Concomitant]
     Active Substance: CYANOCOBALAMIN
     Indication: PRODUCT USED FOR UNKNOWN INDICATION
     Route: 065
     Dates: start: 201705
  2. NAPROXEN. [Concomitant]
     Active Substance: NAPROXEN
     Indication: RHEUMATOID ARTHRITIS
     Route: 065
     Dates: start: 20160308
  3. PREDNISONE. [Suspect]
     Active Substance: PREDNISONE
     Dates: start: 20180316, end: 20180318
  4. PREDNISONE. [Suspect]
     Active Substance: PREDNISONE
     Dates: start: 20180322, end: 20180325
  5. PREDNISONE. [Suspect]
     Active Substance: PREDNISONE
     Indication: OSTEOMYELITIS
     Route: 048
     Dates: start: 20180313, end: 20180315
  6. TOFACITINIB [Suspect]
     Active Substance: TOFACITINIB
     Indication: RHEUMATOID ARTHRITIS
     Route: 048
     Dates: start: 20170810, end: 20180117
  7. ISONIAZID. [Concomitant]
     Active Substance: ISONIAZID
     Indication: LATENT TUBERCULOSIS
     Route: 065
     Dates: start: 20170809
  8. METHOTREXATE. [Suspect]
     Active Substance: METHOTREXATE
     Route: 048
  9. PREDNISONE. [Suspect]
     Active Substance: PREDNISONE
     Dates: start: 20180319, end: 20180321
  10. METHOTREXATE. [Suspect]
     Active Substance: METHOTREXATE
     Indication: RHEUMATOID ARTHRITIS
     Route: 048
     Dates: start: 20170811, end: 20180117
  11. TOFACITINIB [Suspect]
     Active Substance: TOFACITINIB
     Route: 048
     Dates: end: 20180416
  12. FOLIC ACID. [Concomitant]
     Active Substance: FOLIC ACID
     Indication: PRODUCT USED FOR UNKNOWN INDICATION
     Route: 065
     Dates: start: 201403

REACTIONS (3)
  - Osteomyelitis [Recovering/Resolving]
  - Gout [Unknown]
  - Arthritis bacterial [Unknown]

NARRATIVE: CASE EVENT DATE: 20180309
